FAERS Safety Report 5160468-2 (Version None)
Quarter: 2006Q4

REPORT INFORMATION
  Report Type: 
  Country: None (occurrence: None)
  Receive Date: 20061121
  Receipt Date: 20061109
  Transmission Date: 20070319
  Serious: No
  Sender: FDA-Public Use
  Company Number: 2006114353

PATIENT
  Age: 78 Year
  Sex: Male
  Weight: 108.8633 kg

DRUGS (11)
  1. ALDACTONE [Suspect]
     Indication: HYPERTENSION
     Dosage: 50 MG (50 MG FREQUENCY: QD INTERVAL: EVERYDAY )
  2. LIPITOR [Concomitant]
  3. LORATADINE [Concomitant]
  4. SINGULAIR ^MSD^ (MONTELUKAST SODUIM) [Concomitant]
  5. AVODART [Concomitant]
  6. FLOMAX ^CSL^ (TAMSULOSIN HYDROCHLORIDE) [Concomitant]
  7. ASPIRIN [Concomitant]
  8. FUROSEMIDE [Concomitant]
  9. CLOPIDOGREL [Concomitant]
  10. ADVAIR DISKUS 100/50 [Concomitant]
  11. FLUTICASONE PROPIONATE [Concomitant]

REACTIONS (1)
  - OVERDOSE [None]
